FAERS Safety Report 20942662 (Version 1)
Quarter: 2022Q2

REPORT INFORMATION
  Report Type: Spontaneous
  Country: BR (occurrence: BR)
  Receive Date: 20220610
  Receipt Date: 20220610
  Transmission Date: 20220721
  Serious: Yes (Death, Other)
  Sender: FDA-Public Use
  Company Number: BR-STRIDES ARCOLAB LIMITED-2022SP006811

PATIENT
  Age: 14 Year
  Sex: Male

DRUGS (4)
  1. METHOTREXATE [Suspect]
     Active Substance: METHOTREXATE
     Indication: Prophylaxis against graft versus host disease
     Dosage: UNK, THE PATIENT RECEIVED METHOTREXATE AT 1, 3, 6 AND 11DAYS AFTER TRANSPLANT
     Route: 065
  2. CYCLOSPORINE [Suspect]
     Active Substance: CYCLOSPORINE
     Indication: Prophylaxis against graft versus host disease
     Dosage: UNK, THE PATIENT RECEIVED CICLOSPORIN [CYCLOSPORINE] AT 1, 3, 6 AND 11DAYS AFTER TRANSPLANT
     Route: 065
  3. PREDNISOLONE [Suspect]
     Active Substance: PREDNISOLONE
     Indication: Allogenic stem cell transplantation
     Dosage: 10 MILLIGRAM PER DAY
     Route: 065
  4. CYCLOPHOSPHAMIDE [Suspect]
     Active Substance: CYCLOPHOSPHAMIDE
     Indication: Bone marrow conditioning regimen
     Dosage: UNK
     Route: 065

REACTIONS (4)
  - Squamous cell carcinoma [Fatal]
  - Chronic graft versus host disease [Unknown]
  - Dental caries [Unknown]
  - Tooth restoration [Unknown]
